FAERS Safety Report 13070503 (Version 2)
Quarter: 2017Q1

REPORT INFORMATION
  Report Type: Spontaneous
  Country: CA (occurrence: CA)
  Receive Date: 20161229
  Receipt Date: 20170105
  Transmission Date: 20170428
  Serious: Yes (Other)
  Sender: FDA-Public Use
  Company Number: CA-OCTA-GAM44816CA

PATIENT
  Age: 50 Year
  Sex: Female

DRUGS (1)
  1. OCTAGAM IMMUNE GLOBULIN (HUMAN) [Suspect]
     Active Substance: HUMAN IMMUNOGLOBULIN G
     Indication: MULTIFOCAL MOTOR NEUROPATHY
     Route: 042
     Dates: start: 20161215, end: 20161215

REACTIONS (3)
  - Dyspepsia [Unknown]
  - Urticaria [Unknown]
  - Dysphagia [Unknown]

NARRATIVE: CASE EVENT DATE: 20161215
